FAERS Safety Report 4547132-5 (Version None)
Quarter: 2005Q1

REPORT INFORMATION
  Report Type: 
  Country: None (occurrence: None)
  Receive Date: 20050107
  Receipt Date: 20041227
  Transmission Date: 20050727
  Serious: Yes (Death, Hospitalization)
  Sender: FDA-Public Use
  Company Number: FR-JNJFOC-20041100044

PATIENT
  Age: 25 Year
  Sex: Female

DRUGS (1)
  1. EPITOMAX [Suspect]
     Indication: EPILEPSY
     Route: 049

REACTIONS (5)
  - DEATH [None]
  - DYSPNOEA [None]
  - MALAISE [None]
  - MITRAL VALVE PROLAPSE [None]
  - PULMONARY EMBOLISM [None]
